FAERS Safety Report 21213453 (Version 1)
Quarter: 2022Q3

REPORT INFORMATION
  Report Type: Report from Study
  Country: US (occurrence: US)
  Receive Date: 20220815
  Receipt Date: 20220815
  Transmission Date: 20221026
  Serious: Yes (Other)
  Sender: FDA-Public Use
  Company Number: US-SA-SAC20220811000257

PATIENT
  Age: 67 Year
  Sex: Female

DRUGS (2)
  1. IMIGLUCERASE [Suspect]
     Active Substance: IMIGLUCERASE
     Indication: Gaucher^s disease
     Dosage: 3600 UNK, QOW, 90 IU/KG
     Route: 042
     Dates: start: 20160713
  2. IMIGLUCERASE [Suspect]
     Active Substance: IMIGLUCERASE
     Dosage: 4800 U, QOW, 120 IU/KG

REACTIONS (7)
  - Hypothyroidism [Recovering/Resolving]
  - Spinal compression fracture [Recovering/Resolving]
  - Osteoporosis [Recovering/Resolving]
  - Osteolysis [Recovering/Resolving]
  - Coronary artery disease [Recovering/Resolving]
  - Hyperlipidaemia [Recovering/Resolving]
  - Fatigue [Recovering/Resolving]
